FAERS Safety Report 11306646 (Version 1)
Quarter: 2015Q3

REPORT INFORMATION
  Report Type: Spontaneous
  Country: GB (occurrence: GB)
  Receive Date: 20150723
  Receipt Date: 20150723
  Transmission Date: 20151125
  Serious: Yes (Disabling, Other)
  Sender: FDA-Public Use
  Company Number: PHHY2015GB084549

PATIENT
  Age: 67 Year
  Sex: Male
  Weight: 87 kg

DRUGS (4)
  1. OLMETEC [Concomitant]
     Active Substance: OLMESARTAN MEDOXOMIL
     Indication: PRODUCT USED FOR UNKNOWN INDICATION
     Route: 065
  2. PARACETAMOL [Concomitant]
     Active Substance: ACETAMINOPHEN
     Indication: PRODUCT USED FOR UNKNOWN INDICATION
     Route: 065
  3. SIMVASTATIN. [Suspect]
     Active Substance: SIMVASTATIN
     Indication: HYPERCHOLESTEROLAEMIA
     Dosage: 10 MG, UNK
     Route: 048
     Dates: start: 201411, end: 20150704
  4. OMEGA 3 FISH OILS [Concomitant]
     Indication: PRODUCT USED FOR UNKNOWN INDICATION
     Route: 065

REACTIONS (8)
  - Paraesthesia [Unknown]
  - Memory impairment [Unknown]
  - Feeling abnormal [Unknown]
  - Poor quality sleep [Unknown]
  - Pruritus [Unknown]
  - Aggression [Unknown]
  - Fatigue [Unknown]
  - Myalgia [Unknown]

NARRATIVE: CASE EVENT DATE: 201411
